FAERS Safety Report 7933333-2 (Version None)
Quarter: 2011Q4

REPORT INFORMATION
  Report Type: 
  Country: None (occurrence: None)
  Receive Date: 20111122
  Receipt Date: 20111108
  Transmission Date: 20120403
  Serious: Yes (Other)
  Sender: FDA-Public Use
  Company Number: IT-CELGENEUS-083-21880-11091818

PATIENT
  Sex: Male

DRUGS (12)
  1. PREDNISONE TAB [Suspect]
     Indication: MULTIPLE MYELOMA
     Route: 065
     Dates: end: 20060430
  2. REVLIMID [Suspect]
     Dosage: 10 MILLIGRAM
     Route: 048
     Dates: start: 20050820
  3. MELPHALAN HYDROCHLORIDE [Suspect]
     Indication: MULTIPLE MYELOMA
     Route: 065
     Dates: end: 20060430
  4. ASPIRIN [Concomitant]
     Dosage: 1 DOSAGE FORMS
     Route: 065
  5. REVLIMID [Suspect]
     Indication: MULTIPLE MYELOMA
     Dosage: 10 MILLIGRAM
     Route: 048
     Dates: start: 20050718
  6. REVLIMID [Suspect]
     Dosage: 10 MILLIGRAM
     Route: 048
     Dates: start: 20060403
  7. RAMIPRIL [Concomitant]
     Route: 065
  8. SPIRIVA [Concomitant]
     Route: 065
  9. SINESTIC [Concomitant]
     Route: 065
  10. GARDENALE [Concomitant]
     Route: 065
  11. MEPRAL [Concomitant]
     Dosage: 1 DOSAGE FORMS
     Route: 065
  12. CALCIUM SANDOZ [Concomitant]
     Dosage: 250 MILLIGRAM
     Route: 065

REACTIONS (1)
  - BLADDER CANCER [None]
